FAERS Safety Report 7201344-0 (Version None)
Quarter: 2010Q4

REPORT INFORMATION
  Report Type: 
  Country: None (occurrence: None)
  Receive Date: 20101227
  Receipt Date: 20101227
  Transmission Date: 20110411
  Serious: No
  Sender: FDA-Public Use
  Company Number: None

PATIENT
  Age: 77 Year
  Sex: Female
  Weight: 99.7913 kg

DRUGS (1)
  1. KEPPRA [Suspect]
     Dosage: LANTUS INSULIN SQ 59 UNITS QD SUBCONJUNCTIVAL
     Route: 057

REACTIONS (3)
  - ABASIA [None]
  - LYMPHOEDEMA [None]
  - PAIN [None]
